FAERS Safety Report 7846749-X (Version None)
Quarter: 2011Q4

REPORT INFORMATION
  Report Type: 
  Country: None (occurrence: None)
  Receive Date: 20111025
  Receipt Date: 20111018
  Transmission Date: 20120403
  Serious: Yes (Hospitalization, Other)
  Sender: FDA-Public Use
  Company Number: PHEH2009US11084

PATIENT
  Sex: Female

DRUGS (33)
  1. ALLEGRA D 24 HOUR [Concomitant]
  2. ZEBUTAL [Concomitant]
  3. ABILIFY [Concomitant]
  4. AREDIA [Suspect]
     Dates: end: 20080917
  5. FENTANYL-100 [Concomitant]
     Dosage: 225 UG, QOD
  6. RADIATION [Concomitant]
  7. MECLIZINE [Concomitant]
     Dosage: 25 MG, TID, PRN
  8. NEXIUM [Concomitant]
     Dosage: 40 MG, QD
  9. VICODIN [Concomitant]
  10. TAMOXIFEN CITRATE [Concomitant]
  11. ZOMETA [Suspect]
     Indication: METASTASES TO BONE
     Dates: end: 20081126
  12. COUMADIN [Concomitant]
     Dosage: 3 MG, QD
  13. NASACORT [Concomitant]
  14. PERIDEX [Concomitant]
  15. FUROSEMIDE [Concomitant]
  16. CELEXA [Concomitant]
     Indication: DEPRESSION
  17. CRESTOR [Concomitant]
     Dosage: 10 MG, QD
  18. IMITREX [Concomitant]
     Dosage: 100 MG, PRN
  19. LORAZEPAM [Concomitant]
  20. FASLODEX [Concomitant]
  21. MACROBID [Concomitant]
  22. XELODA [Concomitant]
  23. AMOXICILLIN [Concomitant]
     Dosage: 875 MG, BID
  24. ANZEMET [Concomitant]
  25. MEGACE [Concomitant]
  26. AMBIEN [Concomitant]
  27. ABILIFY [Concomitant]
     Dosage: 2 MG, QHS
  28. ALLEGRA [Concomitant]
  29. HALOTUSSIN [Concomitant]
  30. WARFARIN SODIUM [Concomitant]
  31. CELEBREX [Concomitant]
     Indication: ARTHRITIS
  32. NEXIUM [Concomitant]
  33. ZOLPIDEM [Concomitant]

REACTIONS (76)
  - OSTEONECROSIS OF JAW [None]
  - PULMONARY THROMBOSIS [None]
  - CARDIAC MURMUR [None]
  - METASTASES TO BONE [None]
  - IRON DEFICIENCY ANAEMIA [None]
  - TREMOR [None]
  - NEUROPATHY PERIPHERAL [None]
  - DENTAL PLAQUE [None]
  - INJURY [None]
  - URINARY TRACT INFECTION [None]
  - TOOTH FRACTURE [None]
  - ROAD TRAFFIC ACCIDENT [None]
  - ATRIAL FIBRILLATION [None]
  - NERVE INJURY [None]
  - DENTAL CARIES [None]
  - LOWER LIMB FRACTURE [None]
  - INSOMNIA [None]
  - HIATUS HERNIA [None]
  - CONSTIPATION [None]
  - ACUTE MYOCARDIAL INFARCTION [None]
  - SMALL INTESTINAL OBSTRUCTION [None]
  - ANXIETY [None]
  - ANHEDONIA [None]
  - HAEMORRHAGE [None]
  - DEPRESSION [None]
  - HYPOAESTHESIA [None]
  - CLUSTER HEADACHE [None]
  - PULMONARY EMBOLISM [None]
  - HYPERTENSION [None]
  - GINGIVAL DISORDER [None]
  - VULVOVAGINAL MYCOTIC INFECTION [None]
  - HEPATIC CYST [None]
  - HAEMANGIOMA [None]
  - DYSPNOEA [None]
  - LIP ULCERATION [None]
  - RETROPERITONEAL HAEMORRHAGE [None]
  - LYMPHADENOPATHY MEDIASTINAL [None]
  - ROSACEA [None]
  - BLOOD CHOLESTEROL INCREASED [None]
  - PERICARDIAL EFFUSION MALIGNANT [None]
  - BASAL CELL CARCINOMA [None]
  - PRIMARY SEQUESTRUM [None]
  - HOT FLUSH [None]
  - HERPES SIMPLEX [None]
  - METASTASES TO SKIN [None]
  - FLUID RETENTION [None]
  - PLEURAL EFFUSION [None]
  - MIGRAINE [None]
  - SLEEP APNOEA SYNDROME [None]
  - TACHYCARDIA [None]
  - ORAL CAVITY FISTULA [None]
  - METASTASES TO LYMPH NODES [None]
  - IMPAIRED HEALING [None]
  - HEART RATE IRREGULAR [None]
  - VERTIGO [None]
  - EXPOSED BONE IN JAW [None]
  - COMA [None]
  - ABDOMINAL PAIN UPPER [None]
  - CARDIAC FAILURE CONGESTIVE [None]
  - TOOTH LOSS [None]
  - DEEP VEIN THROMBOSIS [None]
  - MENIERE'S DISEASE [None]
  - TOOTH INFECTION [None]
  - GASTROOESOPHAGEAL REFLUX DISEASE [None]
  - MYALGIA [None]
  - NEOPLASM MALIGNANT [None]
  - MACROCYTOSIS [None]
  - ORAL PAIN [None]
  - PAIN [None]
  - ARTHRITIS [None]
  - ANAEMIA [None]
  - HILAR LYMPHADENOPATHY [None]
  - CARDIOMYOPATHY [None]
  - LEUKOPENIA [None]
  - MACULAR DEGENERATION [None]
  - STOMATITIS [None]
